FAERS Safety Report 9230831 (Version 1)
Quarter: 2013Q2

REPORT INFORMATION
  Report Type: Report from Study
  Country: US (occurrence: US)
  Receive Date: 20130415
  Receipt Date: 20130415
  Transmission Date: 20140414
  Serious: Yes (Hospitalization)
  Sender: FDA-Public Use
  Company Number: US-ROCHE-1208690

PATIENT
  Age: 50 Year
  Sex: Female

DRUGS (6)
  1. PEG-INTERFERON ALFA 2A [Suspect]
     Indication: HEPATITIS C
     Route: 058
     Dates: start: 20121101, end: 20130327
  2. COPEGUS [Suspect]
     Indication: HEPATITIS C
     Route: 048
     Dates: start: 20121101, end: 20130327
  3. COPEGUS [Suspect]
     Route: 048
  4. ONDANSETRON [Concomitant]
     Indication: NAUSEA
     Route: 065
  5. OXYCODONE [Concomitant]
     Indication: PAIN
     Route: 048
  6. TIZANIDINE [Concomitant]
     Indication: MUSCLE RELAXANT THERAPY
     Route: 048

REACTIONS (10)
  - Anaemia [Recovered/Resolved]
  - Thrombocytopenia [Recovered/Resolved]
  - Hyponatraemia [Recovering/Resolving]
  - Nausea [Unknown]
  - Vomiting [Unknown]
  - Constipation [Unknown]
  - Abdominal pain [Unknown]
  - Pancytopenia [Recovering/Resolving]
  - Asthenia [Unknown]
  - Faeces discoloured [Unknown]
